FAERS Safety Report 7235876-6 (Version None)
Quarter: 2011Q1

REPORT INFORMATION
  Report Type: 
  Country: None (occurrence: None)
  Receive Date: 20110120
  Receipt Date: 20110111
  Transmission Date: 20110831
  Serious: Yes (Hospitalization)
  Sender: FDA-Public Use
  Company Number: FR-ROCHE-753288

PATIENT
  Age: 64 Year
  Sex: Female

DRUGS (3)
  1. VESANOID [Suspect]
     Dosage: MAINTAINENCE TREATMENT
     Route: 048
     Dates: start: 20100120, end: 20100215
  2. TRISENOX [Concomitant]
     Indication: ACUTE MYELOID LEUKAEMIA
     Dosage: AT 13 MG/HOUR 5 DAYS/7 FOR 4 WEEKS
     Dates: start: 20090911, end: 20091006
  3. VESANOID [Suspect]
     Indication: ACUTE MYELOID LEUKAEMIA
     Route: 048
     Dates: start: 20090730, end: 20090826

REACTIONS (2)
  - MYOSITIS [None]
  - MYALGIA [None]
